FAERS Safety Report 7495488-6 (Version None)
Quarter: 2011Q2

REPORT INFORMATION
  Report Type: 
  Country: None (occurrence: None)
  Receive Date: 20110523
  Receipt Date: 20110516
  Transmission Date: 20111010
  Serious: Yes (Hospitalization)
  Sender: FDA-Public Use
  Company Number: US-ASTRAZENECA-2009UW03115

PATIENT
  Age: 40 Year
  Sex: Female
  Weight: 86.2 kg

DRUGS (10)
  1. SEROQUEL [Suspect]
     Indication: ANXIETY
     Dosage: 100 MG PER DAY TO 300 MG PER DAY
     Route: 048
     Dates: start: 19960101
  2. SEROQUEL [Suspect]
     Route: 048
     Dates: start: 20040318
  3. SEROQUEL [Suspect]
     Route: 048
     Dates: start: 20040318
  4. TERAZOL 1 [Concomitant]
     Dosage: 3,7
     Dates: start: 20031021
  5. SEROQUEL [Suspect]
     Indication: BIPOLAR I DISORDER
     Dosage: 100 MG PER DAY TO 300 MG PER DAY
     Route: 048
     Dates: start: 19960101
  6. TRAMADOL HCL [Concomitant]
     Dates: start: 20011117
  7. ROXICET [Concomitant]
     Dosage: 5-325 MG
     Dates: start: 20010125
  8. TEMAZ [Concomitant]
     Dates: start: 20010205
  9. SEROQUEL [Suspect]
     Route: 048
     Dates: start: 20040318
  10. SEROQUEL [Suspect]
     Indication: SLEEP DISORDER
     Dosage: 100 MG PER DAY TO 300 MG PER DAY
     Route: 048
     Dates: start: 19960101

REACTIONS (5)
  - DIABETES MELLITUS [None]
  - COLLAPSE OF LUNG [None]
  - OBESITY [None]
  - DEPRESSION [None]
  - ROAD TRAFFIC ACCIDENT [None]
